FAERS Safety Report 9097094 (Version 2)
Quarter: 2013Q2

REPORT INFORMATION
  Report Type: Spontaneous
  Country: DE (occurrence: None)
  Receive Date: 20130123
  Receipt Date: 20130422
  Transmission Date: 20140414
  Serious: Yes (Hospitalization)
  Sender: FDA-Public Use
  Company Number: DE-1196163

PATIENT
  Age: 60 Year
  Sex: Male

DRUGS (1)
  1. FLUORESCITE 10 % INJECTION (FLUORESCEIN ALCON 10%) [Suspect]
     Indication: ANGIOGRAM RETINA
     Dosage: 5 ML TOTAL INTRAVENOUS (NOT OTHERWISE SPECIFIED)
     Route: 042
     Dates: start: 20120912, end: 20120912

REACTIONS (4)
  - Hypersensitivity [None]
  - Dyspnoea [None]
  - Hypotension [None]
  - Paraesthesia [None]
